FAERS Safety Report 10273968 (Version 3)
Quarter: 2014Q3

REPORT INFORMATION
  Report Type: Report from Study
  Country: US (occurrence: US)
  Receive Date: 20140702
  Receipt Date: 20140819
  Transmission Date: 20150326
  Serious: Yes (Other)
  Sender: FDA-Public Use
  Company Number: US-BAYER-2014-097696

PATIENT
  Age: 58 Year
  Sex: Female

DRUGS (3)
  1. BETASERON [Suspect]
     Active Substance: INTERFERON BETA-1B
     Indication: CLINICALLY ISOLATED SYNDROME
  2. BETASERON [Suspect]
     Active Substance: INTERFERON BETA-1B
     Indication: SECONDARY PROGRESSIVE MULTIPLE SCLEROSIS
     Dosage: 8 MIU, QOD
     Route: 058
     Dates: start: 20030731
  3. AMPYRA [Concomitant]
     Active Substance: DALFAMPRIDINE
     Dosage: UNK UNK, BID
     Dates: start: 2013, end: 20140624

REACTIONS (6)
  - Drug dose omission [None]
  - Nephropathy [Not Recovered/Not Resolved]
  - Anaemia [Not Recovered/Not Resolved]
  - Psoriasis [Recovering/Resolving]
  - Rash [Recovering/Resolving]
  - Generalised erythema [Recovering/Resolving]

NARRATIVE: CASE EVENT DATE: 2014
